FAERS Safety Report 7896260-5 (Version None)
Quarter: 2011Q4

REPORT INFORMATION
  Report Type: 
  Country: None (occurrence: None)
  Receive Date: 20111106
  Receipt Date: 20110907
  Transmission Date: 20120403
  Serious: No
  Sender: FDA-Public Use
  Company Number: US-AMGEN-USASP2011045861

PATIENT
  Age: 64 Year
  Sex: Female

DRUGS (1)
  1. ENBREL [Suspect]
     Indication: RHEUMATOID ARTHRITIS
     Dosage: 50 MG, QWK
     Dates: start: 20110817

REACTIONS (7)
  - RHEUMATOID ARTHRITIS [None]
  - HEADACHE [None]
  - OROPHARYNGEAL PAIN [None]
  - COUGH [None]
  - ARTHROPATHY [None]
  - FATIGUE [None]
  - MULTIPLE ALLERGIES [None]
